FAERS Safety Report 5237798-9 (Version None)
Quarter: 2007Q1

REPORT INFORMATION
  Report Type: 
  Country: None (occurrence: None)
  Receive Date: 20070214
  Receipt Date: 20061129
  Transmission Date: 20070707
  Serious: Yes (Death, Hospitalization)
  Sender: FDA-Public Use
  Company Number: US-ROCHE-472018

PATIENT
  Age: 65 Year
  Sex: Male
  Weight: 120.2 kg

DRUGS (7)
  1. XELODA [Suspect]
     Indication: COLON CANCER
     Dosage: DOSAGE REGIMEN REPORTED AS ^8 AM / 8 M^.
     Route: 048
     Dates: start: 20061028, end: 20061108
  2. LOMOTIL [Concomitant]
     Indication: PAIN
  3. VALIUM [Concomitant]
  4. PERCOCET [Concomitant]
  5. OXYCONTIN [Concomitant]
  6. MULTI-VITAMIN [Concomitant]
  7. MUSCLE RELAXANT [Concomitant]

REACTIONS (30)
  - ABDOMINAL PAIN [None]
  - ARTERIOSCLEROSIS CORONARY ARTERY [None]
  - ASTHENIA [None]
  - CARDIOMEGALY [None]
  - CHEST PAIN [None]
  - COLON CANCER [None]
  - DECREASED ACTIVITY [None]
  - DECREASED APPETITE [None]
  - DEHYDRATION [None]
  - DIARRHOEA [None]
  - DILATATION VENTRICULAR [None]
  - DYSPNOEA [None]
  - ELECTROLYTE IMBALANCE [None]
  - FATIGUE [None]
  - GASTROINTESTINAL DISORDER [None]
  - HALLUCINATION [None]
  - METASTASES TO LIVER [None]
  - NAUSEA [None]
  - ORAL PAIN [None]
  - OVERDOSE [None]
  - PAIN [None]
  - PAIN IN EXTREMITY [None]
  - PULMONARY OEDEMA [None]
  - RENAL FAILURE [None]
  - SKIN ULCER [None]
  - SLEEP DISORDER [None]
  - THERMAL BURN [None]
  - THIRST [None]
  - VOMITING [None]
  - WHITE BLOOD CELL COUNT DECREASED [None]
